FAERS Safety Report 5733141-7 (Version None)
Quarter: 2008Q2

REPORT INFORMATION
  Report Type: 
  Country: None (occurrence: None)
  Receive Date: 20080509
  Receipt Date: 20080429
  Transmission Date: 20081010
  Serious: Yes (Hospitalization)
  Sender: FDA-Public Use
  Company Number: US-AMGEN-QUU276889

PATIENT
  Sex: Female

DRUGS (2)
  1. KINERET [Suspect]
     Indication: JUVENILE ARTHRITIS
     Route: 058
     Dates: start: 20041201
  2. ENBREL [Suspect]
     Indication: JUVENILE ARTHRITIS

REACTIONS (7)
  - ARTHRALGIA [None]
  - BLOOD PRESSURE INCREASED [None]
  - CEREBROVASCULAR DISORDER [None]
  - FEELING ABNORMAL [None]
  - INJECTION SITE RASH [None]
  - PAIN [None]
  - PYREXIA [None]
